FAERS Safety Report 7403675-8 (Version None)
Quarter: 2011Q2

REPORT INFORMATION
  Report Type: 
  Country: None (occurrence: None)
  Receive Date: 20110408
  Receipt Date: 20110404
  Transmission Date: 20111010
  Serious: Yes (Death)
  Sender: FDA-Public Use
  Company Number: US-PFIZER INC-2011072115

PATIENT
  Sex: Male

DRUGS (1)
  1. SUTENT [Suspect]
     Indication: HEPATIC NEOPLASM MALIGNANT
     Dosage: 50 MG, 1X/DAY, 4 WEEKS ON/2WEEKS OFF

REACTIONS (2)
  - DISEASE PROGRESSION [None]
  - HEPATIC NEOPLASM MALIGNANT [None]
